FAERS Safety Report 7149013-X (Version None)
Quarter: 2010Q4

REPORT INFORMATION
  Report Type: 
  Country: None (occurrence: None)
  Receive Date: 20101209
  Receipt Date: 20101201
  Transmission Date: 20110411
  Serious: Yes (Other)
  Sender: FDA-Public Use
  Company Number: TW-ROCHE-745990

PATIENT
  Age: 54 Year
  Sex: Female

DRUGS (4)
  1. PEGASYS [Suspect]
     Indication: HEPATITIS C
     Route: 058
     Dates: start: 20100303
  2. PEGASYS [Suspect]
     Dosage: DOSE REDUCED
     Route: 058
     Dates: end: 20100728
  3. ROBATROL [Suspect]
     Indication: HEPATITIS C
     Dosage: FREQUENCY: DAILY
     Route: 048
     Dates: start: 20100303
  4. ROBATROL [Suspect]
     Dosage: DOSE: REDUCED
     Route: 048
     Dates: end: 20100804

REACTIONS (3)
  - EOSINOPHILIA [None]
  - POLYNEUROPATHY [None]
  - THROMBOCYTOSIS [None]
